FAERS Safety Report 14535645 (Version 1)
Quarter: 2018Q1

REPORT INFORMATION
  Report Type: Spontaneous
  Country: US (occurrence: US)
  Receive Date: 20180214
  Receipt Date: 20180214
  Transmission Date: 20180509
  Serious: No
  Sender: FDA-Public Use
  Company Number: None

PATIENT
  Sex: Female
  Weight: 99.45 kg

DRUGS (1)
  1. EMPINEPHRINE INJECTION [Suspect]
     Active Substance: EPINEPHRINE
     Indication: MULTIPLE ALLERGIES
     Dosage: ?          QUANTITY:1 INJECTION(S);OTHER ROUTE:INJECTED IN  OUTER THIGH?

REACTIONS (3)
  - Injury associated with device [None]
  - Device malfunction [None]
  - Product substitution issue [None]

NARRATIVE: CASE EVENT DATE: 20180214
